FAERS Safety Report 14323675 (Version 2)
Quarter: 2018Q1

REPORT INFORMATION
  Report Type: Report from Study
  Country: NO (occurrence: NO)
  Receive Date: 20171226
  Receipt Date: 20180104
  Transmission Date: 20180509
  Serious: Yes (Death, Hospitalization)
  Sender: FDA-Public Use
  Company Number: NO-ROCHE-2043960

PATIENT
  Age: 64 Year
  Sex: Male
  Weight: 89.5 kg

DRUGS (8)
  1. ATACAND [Concomitant]
     Active Substance: CANDESARTAN CILEXETIL
     Indication: HYPERTENSION
     Route: 048
  2. MAXALT [Concomitant]
     Active Substance: RIZATRIPTAN BENZOATE
     Indication: MIGRAINE
     Route: 048
  3. COBIMETINIB. [Suspect]
     Active Substance: COBIMETINIB
     Route: 048
     Dates: start: 20171222, end: 20171224
  4. VENETOCLAX. [Suspect]
     Active Substance: VENETOCLAX
     Indication: PLASMA CELL MYELOMA
     Dosage: DATE OF MOST RECENT DOSE ON 08/DEC/2017, 800 MG.
     Route: 048
     Dates: start: 20171204
  5. SOMAC [Concomitant]
     Active Substance: PANTOPRAZOLE SODIUM
     Indication: DYSPEPSIA
     Route: 048
  6. ZOFRAN [Concomitant]
     Active Substance: ONDANSETRON HYDROCHLORIDE
     Indication: NAUSEA
     Route: 048
     Dates: start: 20171204
  7. VITAMINE B12 ROCHE [Concomitant]
     Indication: ANAEMIA
     Dosage: DOSE 1 OTHER
     Route: 030
  8. COBIMETINIB. [Suspect]
     Active Substance: COBIMETINIB
     Indication: PLASMA CELL MYELOMA
     Dosage: DATE OF MOST RECENT DOSE ON 08/DEC/2017, 40 MG.
     Route: 048
     Dates: start: 20171204

REACTIONS (1)
  - Upper respiratory tract infection [Fatal]

NARRATIVE: CASE EVENT DATE: 20171217
